FAERS Safety Report 14477016 (Version 1)
Quarter: 2018Q1

REPORT INFORMATION
  Report Type: Spontaneous
  Country: US (occurrence: US)
  Receive Date: 20180201
  Receipt Date: 20180201
  Transmission Date: 20180509
  Serious: No
  Sender: FDA-Public Use
  Company Number: US-EXELIXIS-CABO-16007809

PATIENT
  Sex: Female

DRUGS (1)
  1. CABOMETYX [Suspect]
     Active Substance: CABOZANTINIB S-MALATE
     Dosage: UNK
     Dates: start: 201606

REACTIONS (6)
  - Skin irritation [Unknown]
  - Urticaria [Unknown]
  - Exposure via body fluid [Unknown]
  - Acne [Unknown]
  - Eye pruritus [Unknown]
  - Eyelid disorder [Unknown]

NARRATIVE: CASE EVENT DATE: 201609
